FAERS Safety Report 17508197 (Version 2)
Quarter: 2020Q1

REPORT INFORMATION
  Report Type: Spontaneous
  Country: DE (occurrence: DE)
  Receive Date: 20200306
  Receipt Date: 20200331
  Transmission Date: 20200409
  Serious: Yes (Death, Hospitalization, Other)
  Sender: FDA-Public Use
  Company Number: DE-SPECGX-T202000516

PATIENT
  Age: 44 Year
  Sex: Female
  Weight: 65 kg

DRUGS (33)
  1. ABSTRAL [Concomitant]
     Active Substance: FENTANYL CITRATE
     Indication: PRODUCT USED FOR UNKNOWN INDICATION
     Dosage: UNK
     Route: 048
  2. EXALGO [Suspect]
     Active Substance: HYDROMORPHONE HYDROCHLORIDE
     Indication: PAIN
     Dosage: 4 MILLIGRAM, BID (8 MG, 1 IN 1 D)
     Route: 048
     Dates: start: 20170407, end: 20170706
  3. NOVAMINOSULFON [Concomitant]
     Active Substance: METAMIZOLE SODIUM
     Indication: ABDOMINAL PAIN
  4. DABRAFENIB [Suspect]
     Active Substance: DABRAFENIB
     Indication: METASTATIC MALIGNANT MELANOMA
     Dosage: 150 MILLIGRAM, BID (300 MG, 1 D)
     Route: 048
     Dates: start: 20161019, end: 20161114
  5. DABRAFENIB [Suspect]
     Active Substance: DABRAFENIB
     Dosage: 150 MILLIGRAM, BID
     Route: 048
     Dates: start: 20161117, end: 20180513
  6. MQF [Concomitant]
     Indication: MALIGNANT MELANOMA
     Dosage: 10 MILLIGRAM, TID
     Route: 065
     Dates: start: 20180228, end: 20180303
  7. NIVOLUMAB [Concomitant]
     Active Substance: NIVOLUMAB
     Indication: MALIGNANT MELANOMA
     Dosage: 1 MILLIGRAM/KILOGRAM, Q3W
     Route: 042
     Dates: start: 20181024, end: 20181024
  8. CELEBREX [Concomitant]
     Active Substance: CELECOXIB
     Indication: PRODUCT USED FOR UNKNOWN INDICATION
     Dosage: 400 MILLIGRAM, QD
     Route: 048
     Dates: start: 20180302
  9. IBUPROFEN. [Concomitant]
     Active Substance: IBUPROFEN
     Indication: MALIGNANT MELANOMA
     Dosage: 600 MILLIGRAM, QD
     Route: 048
     Dates: start: 20170214, end: 20170406
  10. CLEXANE [Concomitant]
     Active Substance: ENOXAPARIN SODIUM
     Indication: PRODUCT USED FOR UNKNOWN INDICATION
     Dosage: 40 MILLIGRAM, QD
     Route: 058
     Dates: start: 20180226, end: 20180303
  11. PREGABALIN. [Concomitant]
     Active Substance: PREGABALIN
     Indication: DEPRESSED MOOD
     Dosage: 75 MILLIGRAM, QD
     Route: 048
     Dates: start: 20170829, end: 20170905
  12. NOVAMINOSULFON [Concomitant]
     Active Substance: METAMIZOLE SODIUM
     Indication: MALIGNANT MELANOMA
     Dosage: 50 MILLIGRAM, PRN
     Route: 048
     Dates: start: 20161115, end: 20170406
  13. ORTOTON [Concomitant]
     Indication: PRODUCT USED FOR UNKNOWN INDICATION
     Dosage: 750 MILLIGRAM
     Route: 048
     Dates: start: 20180516
  14. EXALGO [Suspect]
     Active Substance: HYDROMORPHONE HYDROCHLORIDE
     Dosage: 4 MILLIGRAM, TID (12 MG,1 IN 1 D)
     Route: 048
     Dates: start: 20180516
  15. TRAMETINIB [Suspect]
     Active Substance: TRAMETINIB
     Dosage: 2 MILLIGRAM, QD
     Route: 048
     Dates: start: 20161123, end: 20180513
  16. LAXANS [Concomitant]
     Indication: PRODUCT USED FOR UNKNOWN INDICATION
     Dosage: 15 GTT DROPS, QD
     Route: 065
     Dates: start: 20180225, end: 20180303
  17. PANTOPRAZOLE [Concomitant]
     Active Substance: PANTOPRAZOLE
     Indication: MALIGNANT MELANOMA
     Dosage: 40 MILLIGRAM, QD
     Route: 048
     Dates: start: 20170829
  18. PREGABALIN. [Concomitant]
     Active Substance: PREGABALIN
     Dosage: 100 MILLIGRAM, QD
     Route: 048
     Dates: start: 20180225
  19. CIPRALEX [Concomitant]
     Active Substance: ESCITALOPRAM OXALATE
     Indication: DEPRESSED MOOD
     Dosage: 10 MILLIGRAM, QD
     Route: 048
     Dates: start: 20170518, end: 20180228
  20. PALLADON [Concomitant]
     Active Substance: HYDROMORPHONE
     Indication: MALIGNANT MELANOMA
     Dosage: 1.3 MILLIGRAM
     Route: 048
     Dates: start: 20170407
  21. EXALGO [Suspect]
     Active Substance: HYDROMORPHONE HYDROCHLORIDE
     Indication: MALIGNANT MELANOMA
     Dosage: 4 MILLIGRAM, TID (12 MG,1 IN 1 D)
     Route: 048
     Dates: start: 20170707, end: 20180224
  22. EXALGO [Suspect]
     Active Substance: HYDROMORPHONE HYDROCHLORIDE
     Dosage: 8 MILLIGRAM, QD (8 MG,1 IN 1 D)
     Route: 048
     Dates: start: 20180225, end: 20180225
  23. TRAMETINIB [Suspect]
     Active Substance: TRAMETINIB
     Indication: METASTATIC MALIGNANT MELANOMA
     Dosage: 2 MILLIGRAM, QD
     Route: 048
     Dates: start: 20161019, end: 20161114
  24. DEXAMETHASONE. [Concomitant]
     Active Substance: DEXAMETHASONE
     Indication: MALIGNANT MELANOMA
     Dosage: 4 MILLIGRAM, QD
     Route: 048
     Dates: start: 20170829, end: 20171128
  25. BIFITERAL [Concomitant]
     Active Substance: LACTULOSE
     Indication: PRODUCT USED FOR UNKNOWN INDICATION
     Dosage: 10 GRAM, QD
     Route: 048
     Dates: start: 20180225, end: 20180225
  26. ZOFRAN [Concomitant]
     Active Substance: ONDANSETRON HYDROCHLORIDE
     Indication: MALIGNANT MELANOMA
     Dosage: 8 MILLIGRAM, BID
     Route: 048
     Dates: start: 20161115, end: 20170307
  27. IPILIMUMAB [Concomitant]
     Active Substance: IPILIMUMAB
     Indication: MALIGNANT MELANOMA
     Dosage: 3 MILLIGRAM/KILOGRAM, Q3W
     Route: 042
     Dates: start: 20181024, end: 20181024
  28. MOVICOL [Concomitant]
     Active Substance: POLYETHYLENE GLYCOL 3350\POTASSIUM CHLORIDE\SODIUM BICARBONATE\SODIUM CHLORIDE
     Indication: PRODUCT USED FOR UNKNOWN INDICATION
     Dosage: 13.81 GRAM, QD
     Route: 048
     Dates: start: 20170829, end: 20171128
  29. LAXOBERAL [Concomitant]
     Active Substance: SODIUM PICOSULFATE
     Indication: MALIGNANT MELANOMA
     Dosage: 20 GTT DROPS, QD
     Route: 048
     Dates: start: 20170407, end: 20180225
  30. TILIDINE [Concomitant]
     Active Substance: TILIDINE
     Indication: PRODUCT USED FOR UNKNOWN INDICATION
     Dosage: 50 MILLIGRAM, PRN
     Route: 048
     Dates: start: 20161115, end: 20170406
  31. PEMBROLIZUMAB. [Concomitant]
     Active Substance: PEMBROLIZUMAB
     Indication: PRODUCT USED FOR UNKNOWN INDICATION
     Dosage: 2 MILLIGRAM/KILOGRAM, QD
     Route: 048
     Dates: start: 20180517, end: 20181002
  32. EXALGO [Suspect]
     Active Substance: HYDROMORPHONE HYDROCHLORIDE
     Dosage: 8 MILLIGRAM, TID (24 MG,1 IN 1 D)
     Route: 048
     Dates: start: 20180226
  33. MCP [Concomitant]
     Active Substance: METOCLOPRAMIDE HYDROCHLORIDE
     Indication: MALIGNANT MELANOMA
     Dosage: 10 MILLIGRAM, TID
     Route: 048
     Dates: start: 20170118

REACTIONS (5)
  - Malignant neoplasm progression [Fatal]
  - Metastatic malignant melanoma [Fatal]
  - Abdominal pain [Recovered/Resolved]
  - Intracranial pressure increased [Recovered/Resolved]
  - Constipation [Unknown]

NARRATIVE: CASE EVENT DATE: 20170829
